FAERS Safety Report 10185141 (Version 1)
Quarter: 2014Q2

REPORT INFORMATION
  Report Type: Spontaneous
  Country: US (occurrence: None)
  Receive Date: 20140520
  Receipt Date: 20140520
  Transmission Date: 20141212
  Serious: No
  Sender: FDA-Public Use
  Company Number: None

PATIENT
  Age: 51 Year
  Sex: Female
  Weight: 81.65 kg

DRUGS (2)
  1. LEVAQUIN [Suspect]
     Indication: NASAL CONGESTION
     Dosage: 1 PILL ONCE DAILY TAKEN BY MOUTH
     Route: 048
     Dates: start: 20140411, end: 20140420
  2. LEVAQUIN [Suspect]
     Indication: SINUS DISORDER
     Dosage: 1 PILL ONCE DAILY TAKEN BY MOUTH
     Route: 048
     Dates: start: 20140411, end: 20140420

REACTIONS (9)
  - Influenza [None]
  - Fatigue [None]
  - Arthralgia [None]
  - Hypoaesthesia [None]
  - Arthralgia [None]
  - Pain in extremity [None]
  - Arthralgia [None]
  - Pain in extremity [None]
  - Gait disturbance [None]
